FAERS Safety Report 6683034-6 (Version None)
Quarter: 2010Q2

REPORT INFORMATION
  Report Type: 
  Country: None (occurrence: None)
  Receive Date: 20100415
  Receipt Date: 20100401
  Transmission Date: 20101027
  Serious: Yes (Congenital Anomaly)
  Sender: FDA-Public Use
  Company Number: AU-TEVA-230521ISR

PATIENT

DRUGS (1)
  1. COPAXONE [Suspect]
     Dosage: THE SUSPECT MEDICATION WAS TAKEN BY THE FATHER
     Route: 065

REACTIONS (1)
  - HEART DISEASE CONGENITAL [None]
